FAERS Safety Report 21592556 (Version 1)
Quarter: 2022Q4

REPORT INFORMATION
  Report Type: Spontaneous
  Country: US (occurrence: None)
  Receive Date: 20221112
  Receipt Date: 20221112
  Transmission Date: 20230113
  Serious: Yes (Death, Hospitalization)
  Sender: FDA-Public Use
  Company Number: None

PATIENT
  Age: 19 Year
  Sex: Female
  Weight: 65.4 kg

DRUGS (4)
  1. CYTARABINE [Suspect]
     Active Substance: CYTARABINE
     Dates: end: 20221021
  2. DAUNORUBICIN [Suspect]
     Active Substance: DAUNORUBICIN
     Dates: end: 20221028
  3. ONCASPAR [Suspect]
     Active Substance: PEGASPARGASE
     Dates: end: 20221024
  4. VINCRISTINE SULFATE [Suspect]
     Active Substance: VINCRISTINE SULFATE
     Dates: end: 20221021

REACTIONS (8)
  - Multiple organ dysfunction syndrome [None]
  - Septic shock [None]
  - Respiratory failure [None]
  - Acute kidney injury [None]
  - Ischaemic hepatitis [None]
  - Cardiogenic shock [None]
  - Left ventricular dysfunction [None]
  - Cerebral ischaemia [None]

NARRATIVE: CASE EVENT DATE: 20221104
